FAERS Safety Report 5487361-X (Version None)
Quarter: 2007Q4

REPORT INFORMATION
  Report Type: 
  Country: None (occurrence: None)
  Receive Date: 20071016
  Receipt Date: 20071005
  Transmission Date: 20080405
  Serious: Yes (Hospitalization)
  Sender: FDA-Public Use
  Company Number: FR-PFIZER INC-2006086671

PATIENT
  Sex: Male
  Weight: 71 kg

DRUGS (8)
  1. SU-011,248 [Suspect]
     Indication: RENAL CELL CARCINOMA STAGE UNSPECIFIED
     Route: 048
  2. INEXIUM [Concomitant]
     Route: 048
  3. LEVOTHYROXINE SODIUM [Concomitant]
     Route: 048
  4. OXYCONTIN [Concomitant]
     Route: 048
     Dates: start: 20060522, end: 20060706
  5. OXYNORM [Concomitant]
     Route: 048
     Dates: start: 20060522, end: 20060706
  6. FERROUS SULFATE TAB [Concomitant]
     Route: 048
  7. DURAGESIC-100 [Concomitant]
     Route: 062
  8. GABAPENTIN [Concomitant]
     Route: 048

REACTIONS (1)
  - PLEURAL EFFUSION [None]
